FAERS Safety Report 5126830-9 (Version None)
Quarter: 2006Q4

REPORT INFORMATION
  Report Type: 
  Country: None (occurrence: None)
  Receive Date: 20061013
  Receipt Date: 20061002
  Transmission Date: 20070319
  Serious: Yes (Disabling)
  Sender: FDA-Public Use
  Company Number: PHEH2006US12490

PATIENT
  Age: 40 Year
  Sex: Female
  Weight: 54.421 kg

DRUGS (3)
  1. ZELNORM [Suspect]
     Indication: CONSTIPATION
     Dosage: 6 MG, BID
     Route: 048
  2. TOPAMAX [Concomitant]
     Indication: HEADACHE
     Dosage: 50 MG, BID
     Route: 048
     Dates: start: 20050301
  3. SUMATRIPTAN SUCCINATE [Concomitant]
     Indication: HEADACHE
     Dosage: 25 MG, PRN
     Route: 048

REACTIONS (10)
  - CLONUS [None]
  - COORDINATION ABNORMAL [None]
  - EXTENSOR PLANTAR RESPONSE [None]
  - HYPOAESTHESIA [None]
  - MUSCULAR WEAKNESS [None]
  - NERVOUS SYSTEM DISORDER [None]
  - NEUROPATHY [None]
  - PAIN IN EXTREMITY [None]
  - PARAESTHESIA [None]
  - SENSORY LOSS [None]
